FAERS Safety Report 17137544 (Version 1)
Quarter: 2019Q4

REPORT INFORMATION
  Report Type: Spontaneous
  Country: US (occurrence: US)
  Receive Date: 20191210
  Receipt Date: 20191210
  Transmission Date: 20200122
  Serious: Yes (Death, Other)
  Sender: FDA-Public Use
  Company Number: US-MICRO LABS LIMITED-ML2019-03505

PATIENT
  Age: 43 Year
  Sex: Female

DRUGS (8)
  1. DEXTROMETHORPHAN [Concomitant]
     Active Substance: DEXTROMETHORPHAN
  2. FLUOXETINE [Concomitant]
     Active Substance: FLUOXETINE HYDROCHLORIDE
  3. NORFLUOXETINE [Concomitant]
     Active Substance: NORFLUOXETINE
  4. DIAZEPAM. [Concomitant]
     Active Substance: DIAZEPAM
  5. NORDIAZEPAM [Concomitant]
     Active Substance: NORDAZEPAM
  6. DOXYLAMINE [Concomitant]
     Active Substance: DOXYLAMINE
  7. DIPHENHYDRAMINE HYDROCHLORIDE. [Suspect]
     Active Substance: DIPHENHYDRAMINE HYDROCHLORIDE
  8. PROMETHAZINE [Concomitant]
     Active Substance: PROMETHAZINE HYDROCHLORIDE

REACTIONS (2)
  - Hypertensive heart disease [Fatal]
  - Toxicity to various agents [Fatal]
